FAERS Safety Report 16363707 (Version 2)
Quarter: 2019Q2

REPORT INFORMATION
  Report Type: Spontaneous
  Country: JP (occurrence: JP)
  Receive Date: 20190528
  Receipt Date: 20190624
  Transmission Date: 20190711
  Serious: Yes (Hospitalization, Other)
  Sender: FDA-Public Use
  Company Number: JP-MYLANLABS-2019M1051002

PATIENT
  Age: 39 Year
  Sex: Male
  Weight: 35.9 kg

DRUGS (29)
  1. CYSTAGON [Suspect]
     Active Substance: CYSTEAMINE BITARTRATE
     Dosage: 200 MILLIGRAM, QID
     Route: 048
     Dates: start: 20150306, end: 20171212
  2. FEBURIC [Concomitant]
     Active Substance: FEBUXOSTAT
     Dosage: UNK
     Dates: start: 2001
  3. LANTUS [Concomitant]
     Active Substance: INSULIN GLARGINE
     Dosage: UNK
     Dates: start: 2007
  4. DIOVAN [Concomitant]
     Active Substance: VALSARTAN
     Dosage: UNK
     Dates: start: 2006
  5. BONOTEO [Concomitant]
     Active Substance: MINODRONIC ACID
     Dosage: UNK
  6. CALCIUM LACTATE [Concomitant]
     Active Substance: CALCIUM LACTATE
     Dosage: UNK
  7. MYSLEE [Concomitant]
     Active Substance: ZOLPIDEM TARTRATE
  8. NOVOLIN R [Concomitant]
     Active Substance: INSULIN HUMAN
     Dosage: UNK
     Dates: start: 2007
  9. FEROTYM [Concomitant]
     Active Substance: FERROUS CITRATE\SODIUM
     Dosage: UNK
     Dates: start: 2007
  10. ZETIA [Concomitant]
     Active Substance: EZETIMIBE
     Dosage: UNK
     Dates: start: 2010
  11. FRANDOL [Concomitant]
     Active Substance: ISOSORBIDE DINITRATE
     Dosage: UNK
  12. MILLIS [Concomitant]
     Dosage: UNK
  13. RIONA [Concomitant]
     Active Substance: FERRIC CITRATE ANHYDROUS
     Dosage: UNK
     Dates: start: 20160105
  14. CYSTAGON [Suspect]
     Active Substance: CYSTEAMINE BITARTRATE
     Dosage: 250 MILLIGRAM, QID
     Route: 048
     Dates: start: 20171213
  15. CYSTAGON [Suspect]
     Active Substance: CYSTEAMINE BITARTRATE
     Indication: CYSTINOSIS
     Dosage: 450 MILLIGRAM, QID
     Dates: start: 20120707, end: 20120717
  16. ADETPHOS [Concomitant]
     Active Substance: ADENOSINE TRIPHOSPHATE
     Dosage: UNK
  17. THYRADIN S [Concomitant]
     Active Substance: LEVOTHYROXINE SODIUM
     Dosage: UNK
  18. ALFAROL [Concomitant]
     Active Substance: ALFACALCIDOL
     Dosage: UNK
  19. CYSTAGON [Suspect]
     Active Substance: CYSTEAMINE BITARTRATE
     Dosage: 100 MILLIGRAM, QID
     Route: 048
     Dates: start: 20121113
  20. BREDININ [Concomitant]
     Active Substance: MIZORIBINE
     Dosage: UNK
     Dates: start: 199404
  21. NITROGLYCERIN. [Concomitant]
     Active Substance: NITROGLYCERIN
     Dosage: UNK
     Dates: start: 2000
  22. CYSTAGON [Suspect]
     Active Substance: CYSTEAMINE BITARTRATE
     Dosage: 200 MILLIGRAM, QID
     Route: 048
     Dates: start: 20120724
  23. CALBLOCK [Concomitant]
     Active Substance: AZELNIDIPINE
     Dosage: UNK
     Dates: start: 201204
  24. CYSTAGON [Suspect]
     Active Substance: CYSTEAMINE BITARTRATE
     Dosage: 200 MILLIGRAM, QID
     Route: 048
     Dates: start: 20120919
  25. NEORAL [Concomitant]
     Active Substance: CYCLOSPORINE
     Dosage: UNK
     Dates: start: 2000
  26. NIFEDIPINE. [Concomitant]
     Active Substance: NIFEDIPINE
  27. MECOBALAMIN [Concomitant]
     Active Substance: METHYLCOBALAMIN
     Dosage: UNK
  28. PREDONINE [Concomitant]
     Active Substance: PREDNISOLONE
     Dosage: UNK
     Dates: start: 199404
  29. ALPHA D [Concomitant]
     Dosage: UNK
     Dates: start: 2010

REACTIONS (7)
  - Transaminases increased [Unknown]
  - Vascular shunt [Recovered/Resolved]
  - Keratitis bacterial [Unknown]
  - Fall [Unknown]
  - Fracture [Recovering/Resolving]
  - Hyperphosphataemia [Recovered/Resolved]
  - Decreased appetite [Recovered/Resolved]

NARRATIVE: CASE EVENT DATE: 2012
